FAERS Safety Report 6706203-5 (Version None)
Quarter: 2010Q2

REPORT INFORMATION
  Report Type: 
  Country: None (occurrence: None)
  Receive Date: 20100430
  Receipt Date: 20100430
  Transmission Date: 20101027
  Serious: Yes (Hospitalization)
  Sender: FDA-Public Use
  Company Number: None

PATIENT
  Sex: Male
  Weight: 89.4 kg

DRUGS (4)
  1. CYTARABINE [Suspect]
     Dosage: 38700 MG
     Dates: end: 20100410
  2. ACYCLOVIR [Concomitant]
  3. AVELOX [Concomitant]
  4. POSACONAZOLE [Concomitant]

REACTIONS (2)
  - FEBRILE NEUTROPENIA [None]
  - WHITE BLOOD CELL COUNT DECREASED [None]
